FAERS Safety Report 4424328-4 (Version None)
Quarter: 2004Q3

REPORT INFORMATION
  Report Type: 
  Country: None (occurrence: None)
  Receive Date: 20040805
  Receipt Date: 20040805
  Transmission Date: 20050211
  Serious: Yes (Hospitalization)
  Sender: FDA-Public Use
  Company Number: None

PATIENT
  Age: 67 Year
  Sex: Male
  Weight: 87.5 kg

DRUGS (3)
  1. PACLITAXEL [Suspect]
     Indication: LUNG NEOPLASM MALIGNANT
     Dosage: 98 MG Q WEEK IV
     Route: 042
     Dates: start: 20040712, end: 20040726
  2. CARBOPLATIN [Suspect]
     Indication: LUNG NEOPLASM MALIGNANT
     Dosage: 208 MG Q WEEK IV
     Route: 042
     Dates: start: 20040712, end: 20040726
  3. OSI-774 [Suspect]
     Indication: LUNG NEOPLASM MALIGNANT
     Dosage: 100 MG Q DAY PO
     Route: 048
     Dates: start: 20040712, end: 20040808

REACTIONS (2)
  - POST PROCEDURAL COMPLICATION [None]
  - THROAT TIGHTNESS [None]
